FAERS Safety Report 24764384 (Version 3)
Quarter: 2025Q1

REPORT INFORMATION
  Report Type: Report from Study
  Country: US (occurrence: US)
  Receive Date: 20241223
  Receipt Date: 20250214
  Transmission Date: 20250409
  Serious: Yes (Other)
  Sender: NOVARTIS
  Company Number: US-002147023-NVSC2024US240859

PATIENT
  Age: 44 Year
  Sex: Female
  Weight: 61.23 kg

DRUGS (8)
  1. KISQALI [Suspect]
     Active Substance: RIBOCICLIB
     Indication: Breast cancer
     Dosage: 400 MG, QD
     Route: 048
     Dates: start: 20241016
  2. KISQALI [Suspect]
     Active Substance: RIBOCICLIB
     Indication: Invasive lobular breast carcinoma
     Dosage: 400 MG, QD
     Route: 048
     Dates: start: 20241018
  3. KISQALI [Suspect]
     Active Substance: RIBOCICLIB
     Indication: Hormone receptor positive HER2 negative breast cancer
  4. ANASTROZOLE [Concomitant]
     Active Substance: ANASTROZOLE
     Indication: Invasive lobular breast carcinoma
     Dosage: 1 MG, QD
     Route: 065
     Dates: start: 20241016
  5. ANASTROZOLE [Concomitant]
     Active Substance: ANASTROZOLE
     Indication: Hormone receptor positive HER2 negative breast cancer
  6. GOSERELIN [Concomitant]
     Active Substance: GOSERELIN
     Indication: Invasive lobular breast carcinoma
     Dosage: 1 DOSAGE FORM, Q3MO (1 SHOT EVERY 3 MONTHS)
     Route: 065
     Dates: start: 20241016
  7. GOSERELIN [Concomitant]
     Active Substance: GOSERELIN
     Indication: Hormone receptor positive HER2 negative breast cancer
  8. EFFEXOR [Concomitant]
     Active Substance: VENLAFAXINE HYDROCHLORIDE
     Indication: Product used for unknown indication
     Route: 065

REACTIONS (7)
  - Neutropenia [Unknown]
  - White blood cell count decreased [Recovered/Resolved]
  - Nausea [Not Recovered/Not Resolved]
  - Off label use [Unknown]
  - Memory impairment [Recovering/Resolving]
  - Brain fog [Recovering/Resolving]
  - Feeling abnormal [Recovering/Resolving]

NARRATIVE: CASE EVENT DATE: 20241018
